FAERS Safety Report 9891724 (Version 7)
Quarter: 2021Q3

REPORT INFORMATION
  Report Type: Report from Study
  Country: CA (occurrence: CA)
  Receive Date: 20140212
  Receipt Date: 20210801
  Transmission Date: 20211014
  Serious: Yes (Other)
  Sender: FDA-Public Use
  Company Number: PHHY2011CA108258

PATIENT
  Age: 50 Year
  Sex: Male

DRUGS (7)
  1. SANDOSTATIN LAR DEPOT [Suspect]
     Active Substance: OCTREOTIDE ACETATE
     Indication: PANCREATITIS
     Dosage: 30 MG, BIW
     Route: 030
     Dates: start: 20111202
  2. OCTREOTIDE. [Suspect]
     Active Substance: OCTREOTIDE
  3. SANDOSTATIN [Suspect]
     Active Substance: OCTREOTIDE ACETATE
     Indication: NEUROENDOCRINE TUMOUR
     Dosage: 50 UG, QD
     Route: 058
     Dates: start: 20110401, end: 20111201
  4. SANDOSTATIN LAR DEPOT [Suspect]
     Active Substance: OCTREOTIDE ACETATE
     Indication: NEUROENDOCRINE TUMOUR
     Dosage: 30 MG, BIW
     Route: 030
     Dates: start: 20120222
  5. SANDOSTATIN LAR DEPOT [Suspect]
     Active Substance: OCTREOTIDE ACETATE
     Dosage: 30 MG, BIW (EVERY 2 WEEKS)
     Route: 030
     Dates: start: 20150629
  6. OCTREOTIDE. [Suspect]
     Active Substance: OCTREOTIDE
  7. OCTREOTIDE. [Suspect]
     Active Substance: OCTREOTIDE
     Indication: PANCREATITIS
     Route: 065

REACTIONS (25)
  - Feeling abnormal [Unknown]
  - Abdominal discomfort [Unknown]
  - Product use in unapproved indication [Unknown]
  - Hypoaesthesia [Unknown]
  - Illness [Unknown]
  - Blood pressure increased [Unknown]
  - Muscle tightness [Unknown]
  - Heart rate decreased [Unknown]
  - Skin abrasion [Unknown]
  - Pain [Unknown]
  - Gait disturbance [Unknown]
  - Blood pressure systolic increased [Unknown]
  - Pruritus [Recovered/Resolved]
  - Scab [Unknown]
  - Pain in extremity [Unknown]
  - Pyrexia [Unknown]
  - Vomiting [Unknown]
  - Abdominal pain upper [Not Recovered/Not Resolved]
  - Chest pain [Unknown]
  - Lethargy [Unknown]
  - Nausea [Unknown]
  - Drug ineffective [Unknown]
  - Inappropriate schedule of product administration [Unknown]
  - Arthralgia [Unknown]
  - Scratch [Unknown]

NARRATIVE: CASE EVENT DATE: 20140219
